FAERS Safety Report 7962454-3 (Version None)
Quarter: 2011Q4

REPORT INFORMATION
  Report Type: 
  Country: None (occurrence: None)
  Receive Date: 20111207
  Receipt Date: 20111201
  Transmission Date: 20120403
  Serious: Yes (Hospitalization)
  Sender: FDA-Public Use
  Company Number: US-ABBOTT-11P-163-0880158-00

PATIENT
  Sex: Female

DRUGS (6)
  1. UNNAMED MEDICATION [Concomitant]
     Indication: HYPERTENSION
  2. VICODIN [Concomitant]
     Indication: PRODUCT USED FOR UNKNOWN INDICATION
  3. MOBIC [Concomitant]
     Indication: PRODUCT USED FOR UNKNOWN INDICATION
  4. HUMIRA [Suspect]
     Indication: RHEUMATOID ARTHRITIS
  5. TEMAZEPAM [Concomitant]
     Indication: PRODUCT USED FOR UNKNOWN INDICATION
     Dosage: AT BEDTIME
  6. HUMIRA [Suspect]

REACTIONS (6)
  - FEELING DRUNK [None]
  - GRIP STRENGTH DECREASED [None]
  - MUSCULOSKELETAL DISCOMFORT [None]
  - RENAL FAILURE [None]
  - KIDNEY INFECTION [None]
  - STRESS [None]
